FAERS Safety Report 4950999-X (Version None)
Quarter: 2006Q1

REPORT INFORMATION
  Report Type: 
  Country: None (occurrence: None)
  Receive Date: 20060315
  Receipt Date: 20060216
  Transmission Date: 20060701
  Serious: Yes (Other)
  Sender: FDA-Public Use
  Company Number: ES200602003253

PATIENT
  Age: 11 Year
  Sex: Female

DRUGS (1)
  1. HUMATROPE [Suspect]
     Indication: TURNER'S SYNDROME
     Dosage: 0.048 MG/KG, DAILY (1/D) SUBCUTANEOUS
     Route: 058

REACTIONS (1)
  - PAPILLARY THYROID CANCER [None]
